FAERS Safety Report 6574711-6 (Version None)
Quarter: 2010Q1

REPORT INFORMATION
  Report Type: 
  Country: None (occurrence: None)
  Receive Date: 20100209
  Receipt Date: 20100202
  Transmission Date: 20100710
  Serious: Yes (Life-Threatening, Hospitalization, Other)
  Sender: FDA-Public Use
  Company Number: PHEH2010US01745

PATIENT
  Age: 61 Year
  Sex: Male

DRUGS (3)
  1. FANAPT [Suspect]
     Dosage: 1 MG, BID
     Route: 048
     Dates: start: 20100131, end: 20100202
  2. LEXAPRO [Concomitant]
     Dosage: 20 MG, UNK
  3. SONATA [Concomitant]
     Dosage: 10 MG, UNK

REACTIONS (3)
  - BRAIN DEATH [None]
  - COMA [None]
  - TACHYCARDIA [None]
